FAERS Safety Report 5046247-5 (Version None)
Quarter: 2006Q2

REPORT INFORMATION
  Report Type: 
  Country: None (occurrence: None)
  Receive Date: 20060629
  Receipt Date: 20060621
  Transmission Date: 20061013
  Serious: Yes (Death)
  Sender: FDA-Public Use
  Company Number: USA-2006-0024479

PATIENT
  Age: 61 Year
  Sex: Female

DRUGS (3)
  1. OXYCONTIN [Suspect]
     Indication: PAIN
     Dosage: 40 MG, BID; 60 MG, BID; 80 MG, BID
     Dates: start: 20060607, end: 20060601
  2. OXYCONTIN [Suspect]
     Indication: PAIN
     Dosage: 40 MG, BID; 60 MG, BID; 80 MG, BID
     Dates: start: 20060501
  3. PEMETREXED (PEMETREXED) [Concomitant]

REACTIONS (3)
  - INADEQUATE ANALGESIA [None]
  - MALIGNANT NEOPLASM PROGRESSION [None]
  - PAIN [None]
